FAERS Safety Report 12395814 (Version 1)
Quarter: 2016Q2

REPORT INFORMATION
  Report Type: Not Available
  Country: US (occurrence: US)
  Receive Date: 20160523
  Receipt Date: 20160523
  Transmission Date: 20160815
  Serious: No
  Sender: FDA-Public Use
  Company Number: US-ANIPHARMA-2015-US-000319

PATIENT
  Age: 55 Year
  Sex: Female
  Weight: 72.58 kg

DRUGS (6)
  1. LITHOBID [Suspect]
     Active Substance: LITHIUM CARBONATE
     Dosage: 900 MG DAILY
     Route: 048
     Dates: start: 1985, end: 19990716
  2. ATIVAN [Concomitant]
     Active Substance: LORAZEPAM
     Dosage: UNKNOWN DOSE TWICE DAILY AS NEEDED
     Route: 065
  3. LISINOPRIL. [Concomitant]
     Active Substance: LISINOPRIL
     Dosage: 12.5 MG DAILY
     Route: 065
  4. SIMVASTATIN. [Concomitant]
     Active Substance: SIMVASTATIN
     Dosage: 20 MG DAILY
     Route: 065
  5. MELATONIN [Concomitant]
     Active Substance: MELATONIN
     Dosage: UNKNOWN
     Route: 065
  6. ZYPREXA [Concomitant]
     Active Substance: OLANZAPINE
     Dosage: 10 MG DAILY
     Route: 065

REACTIONS (6)
  - Abdominal distension [Recovered/Resolved]
  - Hypoaesthesia [Recovered/Resolved]
  - Paraesthesia [Recovered/Resolved]
  - Pain [Recovered/Resolved]
  - Toxicity to various agents [Recovered/Resolved]
  - Alopecia [Recovered/Resolved]

NARRATIVE: CASE EVENT DATE: 19990701
